FAERS Safety Report 9530993 (Version 1)
Quarter: 2013Q3

REPORT INFORMATION
  Report Type: Report from Study
  Country: BR (occurrence: BR)
  Receive Date: 20130918
  Receipt Date: 20130918
  Transmission Date: 20140515
  Serious: Yes (Other)
  Sender: FDA-Public Use
  Company Number: BR-ABBVIE-13P-020-1146468-00

PATIENT
  Sex: Female
  Weight: 61 kg

DRUGS (7)
  1. HUMIRA [Suspect]
     Indication: RHEUMATOID ARTHRITIS
     Route: 058
     Dates: start: 20120303
  2. PONDERA [Concomitant]
     Indication: PAIN
     Route: 048
     Dates: start: 2010, end: 20130812
  3. RIVOTRIL [Concomitant]
     Indication: PAIN
     Route: 042
     Dates: start: 2010, end: 20130812
  4. MORPHINE [Concomitant]
     Indication: PAIN
     Route: 042
     Dates: start: 2010, end: 20130812
  5. TRAMAL [Concomitant]
     Indication: PAIN
     Route: 042
     Dates: start: 2010, end: 20130812
  6. LOSARTAN [Concomitant]
     Indication: BLOOD PRESSURE ABNORMAL
     Route: 048
     Dates: end: 20130812
  7. CAPTOPRIL [Concomitant]
     Indication: BLOOD PRESSURE ABNORMAL
     Route: 048
     Dates: end: 20130812

REACTIONS (2)
  - Spinal disorder [Unknown]
  - Pain [Not Recovered/Not Resolved]
